FAERS Safety Report 16255504 (Version 1)
Quarter: 2019Q2

REPORT INFORMATION
  Report Type: Spontaneous
  Country: US (occurrence: US)
  Receive Date: 20190326
  Receipt Date: 20190326
  Transmission Date: 20190711
  Serious: Yes (Disabling)
  Sender: FDA-Public Use
  Company Number: None

PATIENT
  Age: 58 Year
  Sex: Female
  Weight: 89.36 kg

DRUGS (11)
  1. LOSARTAN. [Suspect]
     Active Substance: LOSARTAN
     Indication: BLOOD PRESSURE MANAGEMENT
     Dosage: ?          QUANTITY:100 MG MILLIGRAM(S);?
     Route: 048
     Dates: start: 201505, end: 20190311
  2. MELOXICAM. [Concomitant]
     Active Substance: MELOXICAM
  3. SIMVASTATIN. [Concomitant]
     Active Substance: SIMVASTATIN
  4. CALCIUM [Concomitant]
     Active Substance: CALCIUM
  5. RANITIDINE. [Concomitant]
     Active Substance: RANITIDINE
  6. NIFEDIPINE. [Concomitant]
     Active Substance: NIFEDIPINE
  7. CARVEDILOL. [Concomitant]
     Active Substance: CARVEDILOL
  8. ALLERGY RELIEF [Concomitant]
  9. BAYER ASPIRIN [Concomitant]
     Active Substance: ASPIRIN
  10. TELMISARTAN. [Concomitant]
     Active Substance: TELMISARTAN
  11. HONEY [Concomitant]
     Active Substance: HONEY

REACTIONS (4)
  - Axillary pain [None]
  - Flank pain [None]
  - Dyssomnia [None]
  - Chest pain [None]

NARRATIVE: CASE EVENT DATE: 201605
